FAERS Safety Report 9904289 (Version 1)
Quarter: 2014Q1

REPORT INFORMATION
  Report Type: Spontaneous
  Country: GB (occurrence: GB)
  Receive Date: 20140218
  Receipt Date: 20140218
  Transmission Date: 20141002
  Serious: Yes (Death, Hospitalization, Other)
  Sender: FDA-Public Use
  Company Number: GB-ROCHE-1351562

PATIENT
  Age: 87 Year
  Sex: Female

DRUGS (4)
  1. ALTEPLASE [Suspect]
     Indication: ISCHAEMIC STROKE
     Dosage: SINGLE DOSE
     Route: 065
  2. DIGOXIN [Concomitant]
     Indication: ATRIAL FIBRILLATION
  3. RAMIPRIL [Concomitant]
     Indication: HYPERTENSION
  4. AMLODIPINE [Concomitant]
     Indication: HYPERTENSION

REACTIONS (8)
  - Sepsis [Fatal]
  - Gangrene [Fatal]
  - Extremity necrosis [Fatal]
  - Peripheral ischaemia [Fatal]
  - Iliac artery occlusion [Unknown]
  - Femoral artery occlusion [Unknown]
  - Aortic occlusion [Unknown]
  - Pain in extremity [Unknown]
